FAERS Safety Report 5890952-5 (Version None)
Quarter: 2008Q3

REPORT INFORMATION
  Report Type: 
  Country: None (occurrence: None)
  Receive Date: 20080922
  Receipt Date: 20080917
  Transmission Date: 20090109
  Serious: Yes (Other)
  Sender: FDA-Public Use
  Company Number: A0747959A

PATIENT
  Age: 67 Year
  Sex: Female

DRUGS (10)
  1. ADVAIR DISKUS 100/50 [Suspect]
     Indication: ASTHMA
     Dosage: 1PUFF TWICE PER DAY
     Route: 055
     Dates: start: 20010101
  2. HUMALOG [Concomitant]
  3. LANTUS [Concomitant]
  4. COREG [Concomitant]
  5. ENALAPRIL MALEATE [Concomitant]
  6. DIOVAN [Concomitant]
  7. LIPITOR [Concomitant]
  8. SPIRIVA [Concomitant]
  9. VITAMIN D [Concomitant]
  10. FOSAMAX [Concomitant]

REACTIONS (4)
  - CATARACT [None]
  - CORNEAL EROSION [None]
  - CYST [None]
  - PHOTOSENSITIVITY REACTION [None]
